FAERS Safety Report 25860156 (Version 5)
Quarter: 2025Q4

REPORT INFORMATION
  Report Type: Report from Study
  Country: US (occurrence: US)
  Receive Date: 20250929
  Receipt Date: 20251209
  Transmission Date: 20260117
  Serious: Yes (Hospitalization, Other)
  Sender: ABBVIE
  Company Number: US-ABBVIE-6478174

PATIENT
  Age: 71 Year
  Sex: Female
  Weight: 44.452 kg

DRUGS (3)
  1. VENCLEXTA [Suspect]
     Active Substance: VENETOCLAX
     Indication: Acute myeloid leukaemia
     Dosage: FORM STRENGTH: 100MG
     Route: 048
     Dates: start: 202411, end: 202509
  2. VENCLEXTA [Suspect]
     Active Substance: VENETOCLAX
     Indication: Acute myeloid leukaemia
     Dosage: FORM STRENGTH: 100MG
     Route: 048
     Dates: start: 202509, end: 202510
  3. VENCLEXTA [Suspect]
     Active Substance: VENETOCLAX
     Indication: Acute myeloid leukaemia
     Dosage: FORM STRENGTH: 100MG
     Route: 048
     Dates: start: 20250909, end: 20250915

REACTIONS (10)
  - Laboratory test abnormal [Unknown]
  - Gastrointestinal arteriovenous malformation [Not Recovered/Not Resolved]
  - Gastrointestinal disorder [Unknown]
  - Haemoglobin decreased [Unknown]
  - Gastrointestinal haemorrhage [Not Recovered/Not Resolved]
  - Gastrointestinal obstruction [Unknown]
  - Haematocrit decreased [Unknown]
  - Gastrointestinal disorder [Not Recovered/Not Resolved]
  - Cardiac disorder [Unknown]
  - Septic shock [Unknown]

NARRATIVE: CASE EVENT DATE: 20250101
